FAERS Safety Report 8046422-1 (Version None)
Quarter: 2012Q1

REPORT INFORMATION
  Report Type: 
  Country: None (occurrence: None)
  Receive Date: 20120113
  Receipt Date: 20120104
  Transmission Date: 20120608
  Serious: Yes (Hospitalization)
  Sender: FDA-Public Use
  Company Number: GB-ASTRAZENECA-2012SE00781

PATIENT
  Age: 48 Year
  Sex: Male

DRUGS (7)
  1. DIDANOSINE [Concomitant]
     Indication: HIV INFECTION
  2. ATENOLOL [Suspect]
     Dosage: REINTRODUCED
  3. RANITIDINE [Concomitant]
  4. ATENOLOL [Suspect]
     Indication: MYOCARDIAL INFARCTION
     Dates: start: 20050101, end: 20070101
  5. PRAVASTATIN [Concomitant]
  6. PROPRANOLOL [Suspect]
     Indication: PORTAL HYPERTENSION
     Dosage: 40 MG BD
     Dates: start: 20070101, end: 20091101
  7. ASPIRIN [Concomitant]

REACTIONS (2)
  - SCLEROSING ENCAPSULATING PERITONITIS [None]
  - INTESTINAL OBSTRUCTION [None]
